FAERS Safety Report 5965829-7 (Version None)
Quarter: 2008Q4

REPORT INFORMATION
  Report Type: 
  Country: None (occurrence: None)
  Receive Date: 20081119
  Receipt Date: 20080813
  Transmission Date: 20090506
  Serious: No
  Sender: FDA-Public Use
  Company Number: WAES 0808USA02521

PATIENT
  Age: 71 Year
  Sex: Female

DRUGS (5)
  1. JANUVIA [Suspect]
     Dosage: PO
     Route: 048
  2. LIPITOR [Concomitant]
  3. PRINIVIL [Concomitant]
  4. ZETIA [Concomitant]
  5. METFORMIN HCL [Concomitant]

REACTIONS (1)
  - DRUG INEFFECTIVE [None]
